FAERS Safety Report 13854926 (Version 2)
Quarter: 2017Q4

REPORT INFORMATION
  Report Type: Spontaneous
  Country: JP (occurrence: JP)
  Receive Date: 20170810
  Receipt Date: 20171108
  Transmission Date: 20180320
  Serious: Yes (Death, Disabling, Other)
  Sender: FDA-Public Use
  Company Number: JP-GILEAD-2017-0287402

PATIENT
  Age: 81 Year
  Sex: Male
  Weight: 52 kg

DRUGS (27)
  1. RABEPRAZOLE NA [Concomitant]
     Active Substance: RABEPRAZOLE SODIUM
     Dosage: 1 DF, UNK
     Route: 048
  2. AMLODIPINE [Concomitant]
     Active Substance: AMLODIPINE BESYLATE
     Indication: HYPERTENSION
     Dosage: 1 DF, UNK
     Route: 048
  3. LASIX [Concomitant]
     Active Substance: FUROSEMIDE
     Dosage: 20 MG, UNK
     Route: 042
     Dates: start: 20170707, end: 20170713
  4. SULBACILLIN [Concomitant]
     Active Substance: AMPICILLIN SODIUM\SULBACTAM SODIUM
     Dosage: 3000 MG, BID
     Dates: start: 20170708, end: 20170711
  5. CANCIDAS [Concomitant]
     Active Substance: CASPOFUNGIN ACETATE
     Dosage: 50 MG, UNK
     Route: 042
     Dates: start: 20170707, end: 20170711
  6. TREAKISYM [Concomitant]
     Active Substance: BENDAMUSTINE HYDROCHLORIDE
     Dosage: 146 MG, UNK
     Dates: start: 20170713, end: 20170714
  7. NAIXAN                             /00256201/ [Concomitant]
     Active Substance: NAPROXEN
     Dosage: 1 DF, UNK
     Route: 048
     Dates: start: 20170725
  8. MAXIPIME [Concomitant]
     Active Substance: CEFEPIME HYDROCHLORIDE
     Dosage: 1 G, UNK
     Dates: start: 20170718, end: 20170723
  9. ITRIZOLE [Concomitant]
     Active Substance: ITRACONAZOLE
     Dosage: 4 DF, UNK
     Route: 048
     Dates: start: 20170728
  10. PROEMEND [Concomitant]
     Active Substance: FOSAPREPITANT
     Dosage: 150 MG, UNK
     Dates: start: 20170713, end: 20170713
  11. VEMLIDY [Suspect]
     Active Substance: TENOFOVIR ALAFENAMIDE FUMARATE
     Indication: CHRONIC HEPATITIS B
     Dosage: 25 MG, UNK
     Route: 048
     Dates: start: 20170707
  12. GASLON [Concomitant]
     Active Substance: IRSOGLADINE MALEATE
     Dosage: 2 DF, UNK
     Route: 048
  13. LUNESTA [Concomitant]
     Active Substance: ESZOPICLONE
     Indication: INSOMNIA
     Dosage: 1 DF, UNK
     Route: 048
  14. DAIPHEN [Concomitant]
     Active Substance: SULFAMETHOXAZOLE\TRIMETHOPRIM
     Dosage: 2 DF, UNK
     Route: 048
  15. ELNEOPA NF NO.1 [Concomitant]
     Dosage: 1 DF, UNK
     Route: 042
     Dates: start: 20170706, end: 20170802
  16. CANCIDAS [Concomitant]
     Active Substance: CASPOFUNGIN ACETATE
     Dosage: 50 MG, UNK
     Route: 042
     Dates: start: 20170724, end: 20170727
  17. FILGRASTIM [Concomitant]
     Active Substance: FILGRASTIM
     Dosage: 1 DF, UNK
     Route: 058
     Dates: start: 20170727, end: 20170730
  18. BARACLUDE [Concomitant]
     Active Substance: ENTECAVIR
     Indication: CHRONIC HEPATITIS B
     Dosage: 0.5 MG, UNK
     Route: 048
  19. ALOXI [Concomitant]
     Active Substance: PALONOSETRON HYDROCHLORIDE
     Dosage: 0.75 MG, UNK
     Dates: start: 20170713, end: 20170713
  20. PIPERACILIN/TAZOBACTAM [Concomitant]
     Active Substance: PIPERACILLIN SODIUM\TAZOBACTAM SODIUM
     Dosage: 4.5 G, UNK
     Dates: start: 20170727, end: 20170731
  21. DECADRON [Concomitant]
     Active Substance: DEXAMETHASONE
     Dosage: 6.6 MG, UNK
     Dates: start: 20170731, end: 20170731
  22. VELCADE [Concomitant]
     Active Substance: BORTEZOMIB
     Dosage: 1.54 MG, UNK
     Dates: start: 20170707, end: 20170707
  23. DENOSINE                           /00784201/ [Concomitant]
     Active Substance: GANCICLOVIR
     Dosage: 250 MG, UNK
     Dates: start: 20170728, end: 20170802
  24. DECADRON [Concomitant]
     Active Substance: DEXAMETHASONE
     Dosage: 2 DF, UNK
     Route: 048
  25. DECADRON [Concomitant]
     Active Substance: DEXAMETHASONE
     Dosage: 6.6 MG, UNK
     Dates: start: 20170713, end: 20170714
  26. KCL [Concomitant]
     Active Substance: POTASSIUM CHLORIDE
     Dosage: UNK
     Route: 042
     Dates: start: 20170707, end: 20170713
  27. FILGRASTIM [Concomitant]
     Active Substance: FILGRASTIM
     Dosage: 1 DF, UNK
     Route: 058
     Dates: start: 20170717, end: 20170721

REACTIONS (4)
  - Pyrexia [Fatal]
  - Anaemia [Recovering/Resolving]
  - Lymphoma [Fatal]
  - Pyrexia [Recovering/Resolving]

NARRATIVE: CASE EVENT DATE: 20170708
